FAERS Safety Report 4354154-6 (Version None)
Quarter: 2004Q2

REPORT INFORMATION
  Report Type: 
  Country: None (occurrence: None)
  Receive Date: 20040503
  Receipt Date: 20040419
  Transmission Date: 20050107
  Serious: Yes (Hospitalization)
  Sender: FDA-Public Use
  Company Number: 2004-DE-02168DE

PATIENT
  Age: 15 Year
  Sex: Female

DRUGS (2)
  1. CATAPRESAN 150 (CLONIDINE) (TA) [Suspect]
     Dosage: 7.5 MG(0.15 MG, 1X50) PO; ONCE
     Route: 048
  2. L-THYROXIN 50 (TA) [Suspect]
     Dosage: 2.5 MG (1X15) PO; ONCE

REACTIONS (4)
  - BRADYCARDIA [None]
  - HYPOTENSION [None]
  - SOMNOLENCE [None]
  - SUICIDE ATTEMPT [None]
